FAERS Safety Report 25645101 (Version 1)
Quarter: 2025Q3

REPORT INFORMATION
  Report Type: Spontaneous
  Country: US (occurrence: US)
  Receive Date: 20250805
  Receipt Date: 20250805
  Transmission Date: 20251021
  Serious: No
  Sender: VERTEX
  Company Number: US-VERTEX PHARMACEUTICALS-2025-012462

PATIENT
  Age: 51 Year
  Sex: Male

DRUGS (3)
  1. JOURNAVX [Suspect]
     Active Substance: SUZETRIGINE
     Indication: Neuropathy peripheral
     Dosage: 1 TABLET (50 MG), EVERY 24 HOURS
     Route: 048
  2. JOURNAVX [Suspect]
     Active Substance: SUZETRIGINE
     Indication: Movement disorder
  3. JOURNAVX [Suspect]
     Active Substance: SUZETRIGINE
     Indication: Pain

REACTIONS (2)
  - Rash pruritic [Recovering/Resolving]
  - Off label use [Unknown]

NARRATIVE: CASE EVENT DATE: 20250724
